FAERS Safety Report 5224912-4 (Version None)
Quarter: 2007Q1

REPORT INFORMATION
  Report Type: 
  Country: None (occurrence: None)
  Receive Date: 20070131
  Receipt Date: 20070119
  Transmission Date: 20070707
  Serious: Yes (Other)
  Sender: FDA-Public Use
  Company Number: PHBS2007IT01458

PATIENT
  Sex: Female

DRUGS (1)
  1. FEMARA [Suspect]
     Route: 065

REACTIONS (3)
  - NYSTAGMUS [None]
  - RETINAL DETACHMENT [None]
  - TREMOR [None]
